FAERS Safety Report 23148077 (Version 1)
Quarter: 2023Q4

REPORT INFORMATION
  Report Type: Spontaneous
  Country: FR (occurrence: FR)
  Receive Date: 20231106
  Receipt Date: 20231106
  Transmission Date: 20240110
  Serious: Yes (Other)
  Sender: FDA-Public Use
  Company Number: None

PATIENT
  Age: 40 Year
  Sex: Male
  Weight: 80 kg

DRUGS (3)
  1. ARIPIPRAZOLE [Suspect]
     Active Substance: ARIPIPRAZOLE
     Indication: Schizophrenia
     Dates: start: 2021
  2. VALPROMIDE [Suspect]
     Active Substance: VALPROMIDE
     Indication: Schizophrenia
     Dates: start: 2021
  3. PALIPERIDONE PALMITATE [Suspect]
     Active Substance: PALIPERIDONE PALMITATE
     Indication: Schizophrenia
     Dosage: 1 TIME EVERY 28 DAYS
     Dates: start: 20210812

REACTIONS (4)
  - Visual impairment [Recovering/Resolving]
  - Weight increased [Recovering/Resolving]
  - Alopecia [Recovering/Resolving]
  - Dysaesthesia [Recovering/Resolving]

NARRATIVE: CASE EVENT DATE: 20211015
